FAERS Safety Report 5016401-7 (Version None)
Quarter: 2006Q2

REPORT INFORMATION
  Report Type: 
  Country: None (occurrence: None)
  Receive Date: 20060602
  Receipt Date: 20060529
  Transmission Date: 20061013
  Serious: Yes (Death, Hospitalization)
  Sender: FDA-Public Use
  Company Number: PHBS2006CH07751

PATIENT
  Age: 92 Year
  Sex: Male

DRUGS (10)
  1. ASPIRIN [Suspect]
     Dosage: 100 MG/DAY
     Dates: start: 20051130, end: 20051207
  2. PLAVIX [Suspect]
     Dosage: 75 MG/DAY
     Dates: start: 20051130, end: 20051207
  3. ENATEC [Concomitant]
     Dosage: 10 MG/DAY
     Dates: end: 20051210
  4. DILTIAZEM [Concomitant]
     Dosage: 90 MG/DAY
     Dates: end: 20051210
  5. CO-RENITEN [Concomitant]
     Dosage: 1 TAB/DAY
     Dates: end: 20051210
  6. CAL-DE 3FF [Concomitant]
     Dates: end: 20051210
  7. PROSCAR [Concomitant]
     Dosage: 1 TAB/DAY
     Dates: end: 20051210
  8. MOLSIDOMINE [Concomitant]
     Dosage: 1 TAB/DAY
     Dates: end: 20051210
  9. TORSEMIDE [Concomitant]
     Dosage: 1 TAB/DAY
     Dates: end: 20051210
  10. VOLTAREN [Suspect]
     Dates: end: 20051129

REACTIONS (10)
  - ANAEMIA [None]
  - CARDIAC FAILURE [None]
  - GASTRIC ULCER [None]
  - GASTRITIS HAEMORRHAGIC [None]
  - GASTROOESOPHAGEAL REFLUX DISEASE [None]
  - HIATUS HERNIA [None]
  - HYPOTENSION [None]
  - MELAENA [None]
  - MYOCARDIAL INFARCTION [None]
  - SHOCK [None]
